FAERS Safety Report 7990519-9 (Version None)
Quarter: 2011Q4

REPORT INFORMATION
  Report Type: 
  Country: None (occurrence: None)
  Receive Date: 20111219
  Receipt Date: 20101201
  Transmission Date: 20120403
  Serious: No
  Sender: FDA-Public Use
  Company Number: US-ASTRAZENECA-2010SE57108

PATIENT
  Age: 37 Year
  Sex: Male

DRUGS (1)
  1. CRESTOR [Suspect]
     Indication: HYPERCHOLESTEROLAEMIA
     Route: 048
     Dates: start: 20100201, end: 20100601

REACTIONS (4)
  - HYPERCHOLESTEROLAEMIA [None]
  - DRUG DOSE OMISSION [None]
  - PAIN [None]
  - THYROID NEOPLASM [None]
